FAERS Safety Report 22905863 (Version 2)
Quarter: 2024Q1

REPORT INFORMATION
  Report Type: Spontaneous
  Country: CA (occurrence: CA)
  Receive Date: 20230905
  Receipt Date: 20240105
  Transmission Date: 20240409
  Serious: Yes (Other)
  Sender: FDA-Public Use
  Company Number: None

PATIENT
  Sex: Female

DRUGS (15)
  1. GEMCITABINE [Suspect]
     Active Substance: GEMCITABINE
     Indication: Lymphoma transformation
  2. CYCLOPHOSPHAMIDE [Suspect]
     Active Substance: CYCLOPHOSPHAMIDE
     Indication: Lymphoma transformation
  3. DOXORUBICIN [Suspect]
     Active Substance: DOXORUBICIN
     Indication: Lymphoma transformation
  4. OXALIPLATIN [Suspect]
     Active Substance: OXALIPLATIN
     Indication: Lymphoma transformation
  5. ETOPOSIDE [Suspect]
     Active Substance: ETOPOSIDE
     Indication: Lymphoma transformation
  6. VINCRISTINE SULFATE [Suspect]
     Active Substance: VINCRISTINE SULFATE
     Indication: Lymphoma transformation
  7. PLATINUM [Suspect]
     Active Substance: PLATINUM
     Indication: Lymphoma transformation
  8. PREDNISONE [Suspect]
     Active Substance: PREDNISONE
     Indication: Lymphoma transformation
  9. RITUXIMAB [Suspect]
     Active Substance: RITUXIMAB
     Indication: Lymphoma transformation
  10. CYCLOPHOSPHAMIDE [Suspect]
     Active Substance: CYCLOPHOSPHAMIDE
     Indication: Lymphoma transformation
  11. CYCLOPHOSPHAMIDE [Suspect]
     Active Substance: CYCLOPHOSPHAMIDE
     Indication: Lymphoma transformation
  12. PREDNISONE [Suspect]
     Active Substance: PREDNISONE
     Indication: Lymphoma transformation
  13. RITUXIMAB [Suspect]
     Active Substance: RITUXIMAB
     Indication: Lymphoma transformation
  14. RITUXIMAB [Suspect]
     Active Substance: RITUXIMAB
     Indication: Lymphoma transformation
  15. VINCRISTINE SULFATE [Suspect]
     Active Substance: VINCRISTINE SULFATE
     Indication: Lymphoma transformation

REACTIONS (3)
  - Hepatitis B core antibody positive [Unknown]
  - Disease progression [Unknown]
  - Blood lactate dehydrogenase increased [Unknown]
